FAERS Safety Report 7347797-9 (Version None)
Quarter: 2011Q1

REPORT INFORMATION
  Report Type: 
  Country: None (occurrence: None)
  Receive Date: 20110311
  Receipt Date: 20110302
  Transmission Date: 20110831
  Serious: Yes (Hospitalization, Disabling)
  Sender: FDA-Public Use
  Company Number: PR-MERCK-0805USA02796

PATIENT
  Age: 64 Year
  Sex: Female
  Weight: 55 kg

DRUGS (7)
  1. FOSAMAX [Suspect]
     Indication: OSTEOPENIA
     Route: 048
     Dates: start: 19990101, end: 20060101
  2. FOSAMAX [Suspect]
     Route: 048
     Dates: start: 20010401, end: 20060601
  3. FOSAMAX [Suspect]
     Route: 048
     Dates: start: 19990701
  4. FOSAMAX [Suspect]
     Route: 048
     Dates: start: 19990701
  5. LOTREL [Concomitant]
     Indication: HYPERTENSION
     Route: 065
     Dates: start: 20031201, end: 20051201
  6. FOSAMAX [Suspect]
     Indication: OSTEOPOROSIS
     Route: 048
     Dates: start: 19990101, end: 20060101
  7. FOSAMAX [Suspect]
     Route: 048
     Dates: start: 20010401, end: 20060601

REACTIONS (34)
  - GINGIVITIS [None]
  - INFECTION [None]
  - DYSLIPIDAEMIA [None]
  - GASTROOESOPHAGEAL REFLUX DISEASE [None]
  - HYPERKERATOSIS [None]
  - OSTEOARTHRITIS [None]
  - OESOPHAGITIS [None]
  - ADVERSE DRUG REACTION [None]
  - UPPER RESPIRATORY TRACT INFECTION [None]
  - ADVERSE EVENT [None]
  - BLOOD CHOLESTEROL INCREASED [None]
  - MYOSITIS [None]
  - IMPAIRED HEALING [None]
  - HELICOBACTER TEST POSITIVE [None]
  - DIZZINESS [None]
  - GINGIVAL BLEEDING [None]
  - RHEUMATOID ARTHRITIS [None]
  - OSTEONECROSIS OF JAW [None]
  - ABDOMINAL PAIN [None]
  - HAEMORRHOIDS [None]
  - HAEMATURIA [None]
  - IRRITABLE BOWEL SYNDROME [None]
  - PAIN [None]
  - GASTRITIS [None]
  - BLOOD PRESSURE DECREASED [None]
  - ANAEMIA [None]
  - MASTICATION DISORDER [None]
  - LOW DENSITY LIPOPROTEIN INCREASED [None]
  - OTITIS EXTERNA [None]
  - ABDOMINAL PAIN UPPER [None]
  - LOOSE TOOTH [None]
  - TOOTHACHE [None]
  - DYSURIA [None]
  - DYSPEPSIA [None]
